FAERS Safety Report 11771712 (Version 1)
Quarter: 2015Q4

REPORT INFORMATION
  Report Type: Report from Study
  Country: SG (occurrence: SG)
  Receive Date: 20151124
  Receipt Date: 20151124
  Transmission Date: 20160304
  Serious: Yes (Other)
  Sender: FDA-Public Use
  Company Number: SG-SUN PHARMACEUTICAL INDUSTRIES LTD-2015RR-106132

PATIENT

DRUGS (4)
  1. DOXYCYCLINE. [Suspect]
     Active Substance: DOXYCYCLINE
     Indication: LYMPHADENITIS
     Dosage: 2 MG/KG/D, EVERY 12 HOURS
     Route: 048
  2. SULPHAMETHOXAZOLE/TRIMETHOPRIM [Suspect]
     Active Substance: SULFAMETHOXAZOLE\TRIMETHOPRIM
     Indication: LYMPHADENITIS
     Dosage: 4/20 MG/KG/DOSE EVERY 12 HOURS
     Route: 048
  3. CEFTAZIDIME. [Suspect]
     Active Substance: CEFTAZIDIME
     Indication: LYMPHADENITIS
     Dosage: UNK
     Route: 042
  4. AMOXICILLIN/CLAVULANIC ACID [Suspect]
     Active Substance: AMOXICILLIN\CLAVULANIC ACID
     Dosage: 30 MG/KG, EVERY 8 HOURS
     Route: 048

REACTIONS (2)
  - Myositis [Unknown]
  - Drug reaction with eosinophilia and systemic symptoms [Unknown]
